FAERS Safety Report 6402915-1 (Version None)
Quarter: 2009Q4

REPORT INFORMATION
  Report Type: 
  Country: None (occurrence: None)
  Receive Date: 20091014
  Receipt Date: 20091014
  Transmission Date: 20100525
  Serious: Yes (Other)
  Sender: FDA-Public Use
  Company Number: None

PATIENT
  Age: 68 Year
  Sex: Male
  Weight: 107.9561 kg

DRUGS (2)
  1. LEVEMIR [Suspect]
     Indication: DIABETES MELLITUS
     Dosage: LAST: 50 + 40 BID SQ
     Route: 058
     Dates: start: 20090914, end: 20091013
  2. LEVEMIR [Suspect]
     Indication: DIABETES MELLITUS
     Dosage: LAST: 50 + 40 BID SQ
     Route: 058
     Dates: start: 20090903, end: 20091004

REACTIONS (1)
  - BLOOD GLUCOSE INCREASED [None]
